FAERS Safety Report 15227650 (Version 2)
Quarter: 2018Q3

REPORT INFORMATION
  Report Type: Spontaneous
  Country: JP (occurrence: JP)
  Receive Date: 20180801
  Receipt Date: 20180918
  Transmission Date: 20181010
  Serious: Yes (Death, Disabling)
  Sender: FDA-Public Use
  Company Number: JP-JNJFOC-20180739545

PATIENT
  Age: 84 Year
  Sex: Male
  Weight: 72 kg

DRUGS (7)
  1. OMEPRAZOLE. [Concomitant]
     Active Substance: OMEPRAZOLE
     Indication: DYSPEPSIA
     Route: 048
     Dates: start: 20160907, end: 201808
  2. METOPROLOL. [Concomitant]
     Active Substance: METOPROLOL
     Indication: PULSE ABNORMAL
     Route: 048
     Dates: start: 20160927, end: 201808
  3. SELARA [Concomitant]
     Active Substance: EPLERENONE
     Indication: HYPERTENSION
     Route: 048
     Dates: start: 20160927, end: 201808
  4. TELMISARTAN. [Concomitant]
     Active Substance: TELMISARTAN
     Indication: HYPERTENSION
     Route: 048
     Dates: start: 20160927, end: 201808
  5. XARELTO [Suspect]
     Active Substance: RIVAROXABAN
     Indication: CEREBROVASCULAR ACCIDENT PROPHYLAXIS
     Route: 048
     Dates: start: 20160927, end: 201808
  6. AMBROXOL [Concomitant]
     Active Substance: AMBROXOL
     Indication: LUNG DISORDER
     Route: 048
     Dates: start: 20160927, end: 201808
  7. XARELTO [Suspect]
     Active Substance: RIVAROXABAN
     Indication: ATRIAL FIBRILLATION
     Route: 048
     Dates: start: 20160927, end: 201808

REACTIONS (1)
  - Cerebral infarction [Fatal]

NARRATIVE: CASE EVENT DATE: 201808
